FAERS Safety Report 4590933-8 (Version None)
Quarter: 2005Q1

REPORT INFORMATION
  Report Type: 
  Country: None (occurrence: None)
  Receive Date: 20050225
  Receipt Date: 20050215
  Transmission Date: 20050727
  Serious: Yes (Other)
  Sender: FDA-Public Use
  Company Number: DE-JNJFOC-20041103937

PATIENT
  Age: 56 Year
  Sex: Male
  Weight: 90 kg

DRUGS (6)
  1. REMICADE [Suspect]
     Route: 042
  2. REMICADE [Suspect]
     Indication: CROHN'S DISEASE
     Route: 042
  3. ENTOCORT [Concomitant]
     Route: 065
  4. BERODUAL [Concomitant]
     Route: 065
  5. BERODUAL [Concomitant]
     Route: 065
  6. PULMICORT [Concomitant]
     Route: 065

REACTIONS (7)
  - CHRONIC OBSTRUCTIVE AIRWAYS DISEASE EXACERBATED [None]
  - DYSPNOEA [None]
  - INFUSION RELATED REACTION [None]
  - LUNG INFILTRATION [None]
  - SKIN REACTION [None]
  - TACHYCARDIA [None]
  - VASCULITIS [None]
